FAERS Safety Report 5317429-X (Version None)
Quarter: 2007Q2

REPORT INFORMATION
  Report Type: 
  Country: None (occurrence: None)
  Receive Date: 20070503
  Receipt Date: 20070503
  Transmission Date: 20071010
  Serious: No
  Sender: FDA-Public Use
  Company Number: None

PATIENT
  Age: 54 Year
  Sex: Male

DRUGS (1)
  1. MORPHINE [Suspect]
     Indication: PAIN
     Dosage: 60 MG BID PO
     Route: 048
     Dates: start: 20070125, end: 20070125

REACTIONS (2)
  - ANGIOEDEMA [None]
  - RASH [None]
